FAERS Safety Report 25915556 (Version 1)
Quarter: 2025Q4

REPORT INFORMATION
  Report Type: Spontaneous
  Country: US (occurrence: US)
  Receive Date: 20251013
  Receipt Date: 20251013
  Transmission Date: 20260118
  Serious: No
  Sender: INCYTE
  Company Number: US-INCYTE CORPORATION-2025IN010828

PATIENT
  Age: 75 Year

DRUGS (1)
  1. JAKAFI [Suspect]
     Active Substance: RUXOLITINIB
     Indication: Polycythaemia vera
     Dosage: 5 MILLIGRAM, BID

REACTIONS (4)
  - Product dose omission issue [Unknown]
  - Sinusitis [Unknown]
  - Muscle tightness [Unknown]
  - Dizziness [Unknown]
